FAERS Safety Report 22528564 (Version 1)
Quarter: 2023Q2

REPORT INFORMATION
  Report Type: Spontaneous
  Country: IE (occurrence: IE)
  Receive Date: 20230607
  Receipt Date: 20230607
  Transmission Date: 20230722
  Serious: Yes (Other)
  Sender: FDA-Public Use
  Company Number: IE-SLATE RUN PHARMACEUTICALS-23IE001617

PATIENT

DRUGS (2)
  1. METOPROLOL SUCCINATE [Suspect]
     Active Substance: METOPROLOL SUCCINATE
     Indication: Phaeochromocytoma
     Dosage: 3 MILLIGRAM
     Route: 042
  2. PHENTOLAMINE [Suspect]
     Active Substance: PHENTOLAMINE
     Indication: Phaeochromocytoma
     Dosage: 0.5 MILLIGRAM
     Route: 042

REACTIONS (2)
  - Pulseless electrical activity [Recovered/Resolved]
  - Cardiac arrest [Recovered/Resolved]
